FAERS Safety Report 6248609-7 (Version None)
Quarter: 2009Q2

REPORT INFORMATION
  Report Type: 
  Country: None (occurrence: None)
  Receive Date: 20090624
  Receipt Date: 20090624
  Transmission Date: 20091009
  Serious: No
  Sender: FDA-Public Use
  Company Number: None

PATIENT
  Age: 55 Year
  Sex: Female
  Weight: 89 kg

DRUGS (11)
  1. ARSENIC TRIOXIDE [Suspect]
     Dosage: 15MG/KG/DOSE IV DAILY
     Route: 042
  2. METHADONE [Suspect]
     Indication: PAIN
     Dosage: 30MG PO Q12H
     Route: 048
  3. PROCHLORPERAZINE [Concomitant]
  4. HYDROMORPHONE [Concomitant]
  5. OXYBUTYNIN CHLORIDE [Concomitant]
  6. TEMAZEPAM [Concomitant]
  7. BACLOFEN [Concomitant]
  8. LORAZEPAM [Concomitant]
  9. QUINAPRIL [Concomitant]
  10. DULOXETINE HYDROCHLORIDE [Concomitant]
  11. LANSOPRAZOLE [Concomitant]

REACTIONS (1)
  - ELECTROCARDIOGRAM QT PROLONGED [None]
